FAERS Safety Report 22044021 (Version 1)
Quarter: 2023Q1

REPORT INFORMATION
  Report Type: Spontaneous
  Country: US (occurrence: None)
  Receive Date: 20230227
  Receipt Date: 20230227
  Transmission Date: 20230418
  Serious: Yes (Hospitalization)
  Sender: FDA-Public Use
  Company Number: None

PATIENT
  Age: 82 Year
  Sex: Male

DRUGS (1)
  1. ABIRATERONE [Suspect]
     Active Substance: ABIRATERONE
     Dosage: 1000 MG DAILY ORAL
     Route: 048

REACTIONS (6)
  - Cystitis [None]
  - Thrombosis [None]
  - Fatigue [None]
  - Swelling [None]
  - Feeling abnormal [None]
  - Decreased appetite [None]

NARRATIVE: CASE EVENT DATE: 20230207
